FAERS Safety Report 5059080-5 (Version None)
Quarter: 2006Q3

REPORT INFORMATION
  Report Type: 
  Country: None (occurrence: None)
  Receive Date: 20060718
  Receipt Date: 20060629
  Transmission Date: 20061208
  Serious: Yes (Hospitalization, Other)
  Sender: FDA-Public Use
  Company Number: US200602003308

PATIENT
  Age: 50 Year
  Sex: Female
  Weight: 131.5 kg

DRUGS (20)
  1. ZYPREXA [Suspect]
     Indication: SCHIZOAFFECTIVE DISORDER
     Dosage: SEE IMAGE
     Dates: start: 19980101, end: 20011202
  2. ZYPREXA [Suspect]
     Indication: SCHIZOAFFECTIVE DISORDER
     Dosage: SEE IMAGE
     Dates: start: 20011203, end: 20020201
  3. ZYPREXA [Suspect]
     Indication: SCHIZOAFFECTIVE DISORDER
     Dosage: SEE IMAGE
     Dates: start: 20020108, end: 20030126
  4. ZYPREXA [Suspect]
     Indication: SCHIZOAFFECTIVE DISORDER
     Dosage: SEE IMAGE
     Dates: start: 20030127, end: 20030312
  5. ZYPREXA [Suspect]
     Indication: SCHIZOAFFECTIVE DISORDER
     Dosage: SEE IMAGE
     Dates: start: 20030313, end: 20030426
  6. ZYPREXA [Suspect]
     Indication: SCHIZOAFFECTIVE DISORDER
     Dosage: SEE IMAGE
     Dates: start: 20030427, end: 20030818
  7. ZYPREXA [Suspect]
     Indication: SCHIZOAFFECTIVE DISORDER
     Dosage: SEE IMAGE
     Dates: start: 20030819, end: 20031113
  8. ZYPREXA [Suspect]
     Indication: SCHIZOAFFECTIVE DISORDER
     Dosage: SEE IMAGE
     Dates: start: 20031114, end: 20040121
  9. ZYPREXA [Suspect]
     Indication: SCHIZOAFFECTIVE DISORDER
     Dosage: SEE IMAGE
     Dates: start: 20040122, end: 20040410
  10. ZYPREXA [Suspect]
     Indication: SCHIZOAFFECTIVE DISORDER
     Dosage: SEE IMAGE
     Dates: start: 20040411, end: 20040504
  11. ZYPREXA [Suspect]
     Indication: SCHIZOAFFECTIVE DISORDER
     Dosage: SEE IMAGE
     Dates: start: 20040505, end: 20040616
  12. ZYPREXA [Suspect]
     Indication: SCHIZOAFFECTIVE DISORDER
     Dosage: SEE IMAGE
     Dates: start: 20040617, end: 20040818
  13. ZYPREXA [Suspect]
     Indication: SCHIZOAFFECTIVE DISORDER
     Dosage: SEE IMAGE
     Dates: start: 20040819, end: 20040913
  14. ZYPREXA [Suspect]
     Indication: SCHIZOAFFECTIVE DISORDER
     Dosage: SEE IMAGE
     Dates: start: 20040914, end: 20050719
  15. ZYPREXA [Suspect]
     Indication: SCHIZOAFFECTIVE DISORDER
     Dosage: SEE IMAGE
     Dates: start: 20050720, end: 20060101
  16. ZYPREXA [Suspect]
     Indication: SCHIZOAFFECTIVE DISORDER
     Dosage: SEE IMAGE
     Dates: start: 20060102
  17. FLUOXETINE [Concomitant]
  18. PREMPRO [Concomitant]
  19. PROMETHAZINE W/CODEINE (CODEINE PHOSPHATE, PROMETHAZINE HYDROCHLORIDE) [Concomitant]
  20. LIPITOR [Concomitant]

REACTIONS (52)
  - ACTIVATED PARTIAL THROMBOPLASTIN TIME PROLONGED [None]
  - ACUTE RESPIRATORY FAILURE [None]
  - AORTIC STENOSIS [None]
  - ASTHENIA [None]
  - ATELECTASIS [None]
  - AZOTAEMIA [None]
  - BILE DUCT STONE [None]
  - BLOOD CORTICOTROPHIN ABNORMAL [None]
  - BLOOD CORTISOL ABNORMAL [None]
  - BLOOD CREATINE PHOSPHOKINASE INCREASED [None]
  - BLOOD GLUCOSE INCREASED [None]
  - CARDIAC FAILURE CONGESTIVE [None]
  - CHOLELITHIASIS [None]
  - CHRONIC OBSTRUCTIVE PULMONARY DISEASE [None]
  - COAGULOPATHY [None]
  - CONJUNCTIVITIS [None]
  - COR PULMONALE [None]
  - DIABETES MELLITUS NON-INSULIN-DEPENDENT [None]
  - DRUG RESISTANCE [None]
  - DYSPNOEA [None]
  - EYE IRRITATION [None]
  - FATIGUE [None]
  - GALLBLADDER DISORDER [None]
  - HAEMATOCRIT DECREASED [None]
  - HAEMOGLOBIN DECREASED [None]
  - HAEMOPHILUS INFECTION [None]
  - HEPATIC STEATOSIS [None]
  - HEPATITIS [None]
  - HYPERGLYCAEMIA [None]
  - HYPERNATRAEMIA [None]
  - INADEQUATE DIET [None]
  - INTERNATIONAL NORMALISED RATIO INCREASED [None]
  - LUNG INFILTRATION [None]
  - MALNUTRITION [None]
  - OBESITY [None]
  - PAIN IN EXTREMITY [None]
  - PITTING OEDEMA [None]
  - PNEUMONIA [None]
  - PRESCRIBED OVERDOSE [None]
  - PRODUCTIVE COUGH [None]
  - PULMONARY OEDEMA [None]
  - PYREXIA [None]
  - RESPIRATORY FAILURE [None]
  - SEPSIS [None]
  - SERUM FERRITIN INCREASED [None]
  - SLEEP APNOEA SYNDROME [None]
  - SPUTUM CULTURE POSITIVE [None]
  - THIRST [None]
  - TREATMENT NONCOMPLIANCE [None]
  - TRICUSPID VALVE INCOMPETENCE [None]
  - VISION BLURRED [None]
  - WEIGHT INCREASED [None]
